FAERS Safety Report 6371912-7 (Version None)
Quarter: 2009Q3

REPORT INFORMATION
  Report Type: 
  Country: None (occurrence: None)
  Receive Date: 20090923
  Receipt Date: 20090914
  Transmission Date: 20100115
  Serious: Yes (Hospitalization, Other)
  Sender: FDA-Public Use
  Company Number: US-ABBOTT-09P-163-0596979-00

PATIENT
  Sex: Female
  Weight: 52.21 kg

DRUGS (10)
  1. HUMIRA [Suspect]
     Indication: RHEUMATOID ARTHRITIS
     Route: 058
     Dates: start: 20060801
  2. HUMIRA [Suspect]
     Dosage: SWITCHED TO HUMIRA PEN
     Route: 058
  3. HUMIRA [Suspect]
     Route: 058
     Dates: start: 20090801
  4. HUMIRA [Suspect]
     Indication: RHEUMATOID ARTHRITIS
     Dates: end: 20090801
  5. HUMIRA [Suspect]
     Dates: start: 20090801
  6. METHOTREXATE [Concomitant]
     Indication: RHEUMATOID ARTHRITIS
     Route: 048
  7. PLAQUENIL [Concomitant]
     Indication: RHEUMATOID ARTHRITIS
     Route: 048
  8. PREDNISONE TAB [Concomitant]
     Indication: RHEUMATOID ARTHRITIS
     Dosage: 0.5 TABLET DAILY
     Route: 048
  9. TUMERIC [Concomitant]
     Indication: SUPPLEMENTATION THERAPY
     Route: 048
  10. GLUCOSAMINE [Concomitant]
     Indication: SUPPLEMENTATION THERAPY

REACTIONS (6)
  - DRUG DOSE OMISSION [None]
  - FRACTURE [None]
  - PELVIC FRACTURE [None]
  - PHARYNGEAL INJURY [None]
  - PNEUMOTHORAX TRAUMATIC [None]
  - RIB FRACTURE [None]
